FAERS Safety Report 17510840 (Version 1)
Quarter: 2020Q1

REPORT INFORMATION
  Report Type: Spontaneous
  Country: AT (occurrence: AT)
  Receive Date: 20200306
  Receipt Date: 20200306
  Transmission Date: 20200409
  Serious: Yes (Other)
  Sender: FDA-Public Use
  Company Number: AT-JNJFOC-20200236539

PATIENT
  Sex: Male

DRUGS (1)
  1. RISPERDAL [Suspect]
     Active Substance: RISPERIDONE
     Indication: SCHIZOPHRENIA
     Route: 065
     Dates: start: 2004, end: 2018

REACTIONS (3)
  - Schizophrenia [Unknown]
  - Pancytopenia [Unknown]
  - Colon cancer [Unknown]

NARRATIVE: CASE EVENT DATE: 2010
